FAERS Safety Report 13497158 (Version 1)
Quarter: 2017Q2

REPORT INFORMATION
  Report Type: Spontaneous
  Country: US (occurrence: US)
  Receive Date: 20170428
  Receipt Date: 20170428
  Transmission Date: 20170830
  Serious: Yes (Other)
  Sender: FDA-Public Use
  Company Number: US-PFIZER INC-2017187812

PATIENT
  Age: 45 Year
  Sex: Female

DRUGS (1)
  1. EPIPEN [Suspect]
     Active Substance: EPINEPHRINE
     Indication: HYPERSENSITIVITY
     Dosage: UNK UNK, ONCE
     Route: 030
     Dates: start: 201611, end: 201611

REACTIONS (6)
  - Device failure [Recovered/Resolved]
  - Device use issue [Recovered/Resolved]
  - Accidental exposure to product [Recovered/Resolved]
  - Injection site discolouration [Recovered/Resolved]
  - Injection site hypoaesthesia [Recovered/Resolved]
  - Product quality issue [Recovered/Resolved]

NARRATIVE: CASE EVENT DATE: 201611
